FAERS Safety Report 8586334-8 (Version None)
Quarter: 2012Q3

REPORT INFORMATION
  Report Type: 
  Country: None (occurrence: None)
  Receive Date: 20120810
  Receipt Date: 19881202
  Transmission Date: 20120928
  Serious: Yes (Other)
  Sender: FDA-Public Use
  Company Number: US-ROCHE-1098826

PATIENT
  Age: 49 Year
  Sex: Female

DRUGS (2)
  1. ACTIVASE [Suspect]
     Indication: ACUTE MYOCARDIAL INFARCTION
  2. ACTIVASE [Suspect]
     Indication: ARTERIOSCLEROSIS CORONARY ARTERY

REACTIONS (4)
  - HYPERHIDROSIS [None]
  - DYSPEPSIA [None]
  - GINGIVAL BLEEDING [None]
  - CHEST PAIN [None]
